FAERS Safety Report 5877359-1 (Version None)
Quarter: 2008Q3

REPORT INFORMATION
  Report Type: 
  Country: None (occurrence: None)
  Receive Date: 20080908
  Receipt Date: 20080819
  Transmission Date: 20090109
  Serious: Yes (Hospitalization)
  Sender: FDA-Public Use
  Company Number: 2008BI021571

PATIENT
  Sex: Female

DRUGS (10)
  1. AVONEX [Suspect]
     Indication: MULTIPLE SCLEROSIS
     Dosage: 30 UG;QW;IM
     Route: 030
     Dates: start: 20080301
  2. MOTILIUM [Concomitant]
  3. BACLOFEN [Concomitant]
  4. HIDANTAL [Concomitant]
  5. PLASIL [Concomitant]
  6. OMEPRAZOLE [Concomitant]
  7. CAPTOPRIL [Concomitant]
  8. BROMOPRIDE [Concomitant]
  9. MINERAL OIL [Concomitant]
  10. CLEXANE [Concomitant]

REACTIONS (15)
  - ABDOMINAL PAIN [None]
  - CHILLS [None]
  - CONDITION AGGRAVATED [None]
  - DEPRESSION [None]
  - DYSPHAGIA [None]
  - FEELING COLD [None]
  - HEADACHE [None]
  - HYPERSOMNIA [None]
  - HYPERTENSION [None]
  - MEMORY IMPAIRMENT [None]
  - MULTIPLE SCLEROSIS [None]
  - PAIN [None]
  - PYREXIA [None]
  - STRESS [None]
  - TREMOR [None]
